FAERS Safety Report 7769587-5 (Version None)
Quarter: 2011Q3

REPORT INFORMATION
  Report Type: 
  Country: None (occurrence: None)
  Receive Date: 20110922
  Receipt Date: 20110406
  Transmission Date: 20111222
  Serious: Yes (Other)
  Sender: FDA-Public Use
  Company Number: US-ASTRAZENECA-2011SE19399

PATIENT
  Age: 50 Year
  Sex: Female

DRUGS (3)
  1. CELEXA [Concomitant]
     Dosage: 40
  2. SEROQUEL XR [Suspect]
     Indication: MAJOR DEPRESSION
     Route: 048
  3. AMBIEN [Concomitant]
     Dosage: 10

REACTIONS (1)
  - WEIGHT INCREASED [None]
